FAERS Safety Report 13065919 (Version 1)
Quarter: 2016Q4

REPORT INFORMATION
  Report Type: Spontaneous
  Country: DE (occurrence: DE)
  Receive Date: 20161227
  Receipt Date: 20161227
  Transmission Date: 20170207
  Serious: Yes (Death, Other)
  Sender: FDA-Public Use
  Company Number: DE-IMPAX LABORATORIES, INC-2016-IPXL-02412

PATIENT
  Age: 23 Year
  Sex: Female

DRUGS (1)
  1. CHLOROQUINE PHOSPHATE. [Suspect]
     Active Substance: CHLOROQUINE PHOSPHATE
     Indication: PORPHYRIA NON-ACUTE
     Dosage: 1250 MG, SINGLE DOSE
     Route: 065

REACTIONS (5)
  - Accidental overdose [Fatal]
  - Toxicity to various agents [Fatal]
  - Hepatic failure [Fatal]
  - Coma [Unknown]
  - Off label use [Unknown]
